FAERS Safety Report 4636111-5 (Version None)
Quarter: 2005Q2

REPORT INFORMATION
  Report Type: 
  Country: None (occurrence: None)
  Receive Date: 20050415
  Receipt Date: 20050302
  Transmission Date: 20051028
  Serious: Yes (Life-Threatening, Disabling, Other)
  Sender: FDA-Public Use
  Company Number: US-MERCK-0503USA00324

PATIENT
  Age: 55 Year
  Sex: Female
  Weight: 67 kg

DRUGS (11)
  1. FOSAMAX [Suspect]
     Indication: OSTEOPOROSIS
     Route: 048
     Dates: end: 20050101
  2. FOSAMAX [Suspect]
     Route: 048
     Dates: start: 20050201, end: 20050201
  3. FOSAMAX [Suspect]
     Indication: OSTEOPENIA
     Route: 048
     Dates: end: 20050101
  4. FOSAMAX [Suspect]
     Route: 048
     Dates: start: 20050201, end: 20050201
  5. CALCIUM (UNSPECIFIED) [Concomitant]
     Route: 065
  6. CHONDROITIN SULFATE SODIUM AND GLUCOSAMINE SULFATE [Concomitant]
     Route: 065
  7. VITAMIN E [Concomitant]
     Route: 065
  8. VITAMIN A [Concomitant]
     Route: 065
  9. PYRIDOXINE [Concomitant]
     Route: 065
  10. ASCORBIC ACID [Concomitant]
     Route: 065
  11. CENTRUM [Concomitant]
     Route: 065

REACTIONS (5)
  - ANAPHYLACTIC SHOCK [None]
  - HYPERSENSITIVITY [None]
  - INCREASED UPPER AIRWAY SECRETION [None]
  - OROPHARYNGEAL SWELLING [None]
  - URTICARIA [None]
